FAERS Safety Report 14988123 (Version 1)
Quarter: 2018Q2

REPORT INFORMATION
  Report Type: Spontaneous
  Country: US (occurrence: US)
  Receive Date: 20180608
  Receipt Date: 20180608
  Transmission Date: 20180711
  Serious: No
  Sender: FDA-Public Use
  Company Number: US-PFIZER INC-2018229119

PATIENT
  Age: 70 Year
  Sex: Female
  Weight: 95.25 kg

DRUGS (2)
  1. PREDNISONE. [Suspect]
     Active Substance: PREDNISONE
     Indication: SYSTEMIC LUPUS ERYTHEMATOSUS
     Dosage: 7.5 MG, DAILY, (5 MG TAKES ONE AND A HALF TABLET FOR 7.5 MG)
     Route: 048
     Dates: start: 2002
  2. XELJANZ XR [Suspect]
     Active Substance: TOFACITINIB CITRATE
     Indication: RHEUMATOID ARTHRITIS
     Dosage: 11 MG, 1X/DAY
     Route: 048

REACTIONS (5)
  - Tooth infection [Recovering/Resolving]
  - Gingivitis [Recovering/Resolving]
  - Headache [Unknown]
  - Condition aggravated [Unknown]
  - Tooth fracture [Recovering/Resolving]

NARRATIVE: CASE EVENT DATE: 201801
